FAERS Safety Report 13280017 (Version 1)
Quarter: 2017Q1

REPORT INFORMATION
  Report Type: Report from Study
  Country: None (occurrence: US)
  Receive Date: 20170301
  Receipt Date: 20170301
  Transmission Date: 20170428
  Serious: No
  Sender: FDA-Public Use
  Company Number: US-AMAG PHARMACEUTICALS, INC.-AMAG201600844

PATIENT

DRUGS (8)
  1. DOCUSATE [Concomitant]
     Active Substance: DOCUSATE
  2. HYDROCODONE BITARTRATE AND ACETAMINOPHEN [Concomitant]
     Active Substance: ACETAMINOPHEN\HYDROCODONE BITARTRATE
  3. MAKENA [Suspect]
     Active Substance: HYDROXYPROGESTERONE CAPROATE
     Indication: PRODUCT USED FOR UNKNOWN INDICATION
     Dosage: 250 MG, UNK
     Route: 065
     Dates: start: 20160427
  4. PROMETHAZINE [Concomitant]
     Active Substance: PROMETHAZINE\PROMETHAZINE HYDROCHLORIDE
  5. PYRIDOXIN [Concomitant]
     Active Substance: PYRIDOXINE
  6. ONDANSETRON [Concomitant]
     Active Substance: ONDANSETRON
  7. FERROUS SULFATE. [Concomitant]
     Active Substance: FERROUS SULFATE
  8. PROGESTERONE. [Concomitant]
     Active Substance: PROGESTERONE

REACTIONS (17)
  - Muscle spasms [Recovered/Resolved]
  - Injection site pain [Unknown]
  - Anxiety [Unknown]
  - Pain [Unknown]
  - Breast tenderness [Unknown]
  - Abdominal discomfort [Unknown]
  - Headache [Unknown]
  - Nausea [Unknown]
  - Headache [Not Recovered/Not Resolved]
  - Amaurosis fugax [Recovered/Resolved]
  - Dyspnoea [Unknown]
  - Diarrhoea [Unknown]
  - Restless legs syndrome [Unknown]
  - Migraine [Unknown]
  - Nausea [Unknown]
  - Injection site induration [Unknown]
  - Groin pain [Unknown]

NARRATIVE: CASE EVENT DATE: 20160208
